FAERS Safety Report 10260248 (Version 2)
Quarter: 2015Q1

REPORT INFORMATION
  Report Type: Spontaneous
  Country: US (occurrence: US)
  Receive Date: 20140625
  Receipt Date: 20150326
  Transmission Date: 20150720
  Serious: No
  Sender: FDA-Public Use
  Company Number: US-SA-2014SA043935

PATIENT
  Age: 35 Year
  Sex: Male
  Weight: 93 kg

DRUGS (9)
  1. AUBAGIO [Suspect]
     Active Substance: TERIFLUNOMIDE
     Route: 048
     Dates: start: 20140317
  2. ZANAFLEX [Concomitant]
     Active Substance: TIZANIDINE HYDROCHLORIDE
  3. STOOL SOFTENER [Concomitant]
     Active Substance: DOCUSATE CALCIUM
  4. WELLBUTRIN [Concomitant]
     Active Substance: BUPROPION HYDROCHLORIDE
  5. AUBAGIO [Suspect]
     Active Substance: TERIFLUNOMIDE
     Route: 048
     Dates: start: 20140126
  6. AMPYRA [Suspect]
     Active Substance: DALFAMPRIDINE
     Dosage: AMPYRA TABLET 10 MG
     Route: 048
     Dates: start: 2012
  7. VITAMIN D [Concomitant]
     Active Substance: CHOLECALCIFEROL
     Dosage: DOSE:400 UNIT(S)
  8. BACLOFEN. [Concomitant]
     Active Substance: BACLOFEN
  9. MSM [Concomitant]
     Active Substance: DIMETHYL SULFONE

REACTIONS (3)
  - Feeling abnormal [Recovered/Resolved]
  - Wrong technique in drug usage process [Unknown]
  - Distractibility [Recovered/Resolved]

NARRATIVE: CASE EVENT DATE: 20140317
